FAERS Safety Report 19461677 (Version 1)
Quarter: 2021Q2

REPORT INFORMATION
  Report Type: Spontaneous
  Country: US (occurrence: US)
  Receive Date: 20210625
  Receipt Date: 20210625
  Transmission Date: 20210717
  Serious: No
  Sender: FDA-Public Use
  Company Number: US-ORGANON-O2106USA001692

PATIENT
  Age: 25 Year
  Sex: Female
  Weight: 81.65 kg

DRUGS (3)
  1. NEXPLANON [Suspect]
     Active Substance: ETONOGESTREL
     Indication: CONTRACEPTION
     Dosage: 1 IMPLANT FOR 3 YEARS
     Route: 059
  2. NEXPLANON [Suspect]
     Active Substance: ETONOGESTREL
     Dosage: CURRENT IMPLANT
     Route: 059
     Dates: start: 202010
  3. NEXPLANON [Suspect]
     Active Substance: ETONOGESTREL
     Dosage: 2ND IMPLANT FOR 2.5 YEARS
     Route: 059

REACTIONS (4)
  - Amenorrhoea [Not Recovered/Not Resolved]
  - Head discomfort [Not Recovered/Not Resolved]
  - Headache [Not Recovered/Not Resolved]
  - Ovarian cyst [Not Recovered/Not Resolved]

NARRATIVE: CASE EVENT DATE: 202010
